FAERS Safety Report 5187292-9 (Version None)
Quarter: 2006Q4

REPORT INFORMATION
  Report Type: 
  Country: None (occurrence: None)
  Receive Date: 20061220
  Receipt Date: 20060419
  Transmission Date: 20070319
  Serious: No
  Sender: FDA-Public Use
  Company Number: US-AMGEN-US176887

PATIENT
  Sex: Female

DRUGS (18)
  1. ENBREL [Suspect]
     Indication: PSORIATIC ARTHROPATHY
     Route: 058
  2. LANTUS [Concomitant]
     Route: 065
  3. LEVAQUIN [Concomitant]
     Route: 065
  4. TERCONAZOLE [Concomitant]
     Route: 065
  5. MAGNESIUM OXIDE [Concomitant]
     Route: 065
  6. PLAVIX [Concomitant]
     Route: 065
  7. METFORMIN [Concomitant]
     Route: 065
  8. ISOSORBIDE MONONITRATE [Concomitant]
     Route: 065
  9. TIZANIDINE HCL [Concomitant]
     Route: 048
  10. AMMONIUM LACTATE [Concomitant]
     Route: 065
  11. ATENOLOL [Concomitant]
     Route: 065
  12. METHOTREXATE [Concomitant]
     Route: 065
  13. PREDNISONE TAB [Concomitant]
     Route: 065
  14. NEXIUM [Concomitant]
     Route: 048
  15. FOLIC ACID [Concomitant]
     Route: 065
  16. PREMARIN [Concomitant]
     Route: 065
  17. LIPITOR [Concomitant]
     Route: 065
  18. DIAZEPAM [Concomitant]
     Route: 065

REACTIONS (2)
  - BLISTER [None]
  - INJECTION SITE PAIN [None]
